FAERS Safety Report 10033137 (Version 1)
Quarter: 2014Q1

REPORT INFORMATION
  Report Type: Spontaneous
  Country: US (occurrence: US)
  Receive Date: 20140324
  Receipt Date: 20140324
  Transmission Date: 20141002
  Serious: No
  Sender: FDA-Public Use
  Company Number: US-GILEAD-2014-0097494

PATIENT
  Sex: Male

DRUGS (3)
  1. SOVALDI [Suspect]
     Indication: HEPATITIS C
     Route: 065
  2. RIBAVIRIN [Suspect]
     Indication: HEPATITIS C
     Route: 065
  3. PEGASYS [Suspect]
     Indication: HEPATITIS C
     Route: 065

REACTIONS (4)
  - Abdominal pain [Unknown]
  - International normalised ratio increased [Unknown]
  - Platelet count decreased [Unknown]
  - Nausea [Unknown]
